FAERS Safety Report 9330105 (Version 1)
Quarter: 2013Q2

REPORT INFORMATION
  Report Type: Spontaneous
  Country: US (occurrence: US)
  Receive Date: 20130604
  Receipt Date: 20130604
  Transmission Date: 20140414
  Serious: Yes (Other)
  Sender: FDA-Public Use
  Company Number: CHPA2013US009270

PATIENT
  Age: 58 Year
  Sex: Female

DRUGS (1)
  1. PRIVATE LABEL [Suspect]
     Indication: SMOKING CESSATION THERAPY
     Dosage: 21 MG, QD
     Route: 062
     Dates: start: 20130325

REACTIONS (3)
  - Conjunctivitis [Recovered/Resolved]
  - Skin discolouration [Unknown]
  - Application site pruritus [Unknown]
